FAERS Safety Report 9424781 (Version 1)
Quarter: 2013Q3

REPORT INFORMATION
  Report Type: Spontaneous
  Country: CO (occurrence: CO)
  Receive Date: 20130729
  Receipt Date: 20130729
  Transmission Date: 20140515
  Serious: Yes (Other)
  Sender: FDA-Public Use
  Company Number: CO-PFIZER INC-2013219727

PATIENT
  Age: 77 Year
  Sex: Female

DRUGS (2)
  1. ZOLOF [Suspect]
     Dosage: 50 MG, 2X/DAY
     Route: 048
     Dates: start: 201306
  2. NEURONTIN [Suspect]
     Dosage: 500 MG, 1X/DAY
     Route: 048

REACTIONS (2)
  - Femur fracture [Recovering/Resolving]
  - Fall [Recovering/Resolving]
